FAERS Safety Report 5501771-3 (Version None)
Quarter: 2007Q4

REPORT INFORMATION
  Report Type: 
  Country: None (occurrence: None)
  Receive Date: 20071018
  Receipt Date: 20070729
  Transmission Date: 20080405
  Serious: Yes (Other)
  Sender: FDA-Public Use
  Company Number: 2007024907

PATIENT
  Sex: Female

DRUGS (4)
  1. NEURONTIN [Suspect]
     Indication: DYSKINESIA
     Dates: start: 20051201, end: 20060501
  2. PROZAC [Suspect]
  3. ESOMEPRAZOLE (ESOMEPRAZOLE) [Suspect]
  4. SLEEP AID (SCOPOLAMINE AMINOXIDE HYDROBROMIDE) [Suspect]

REACTIONS (5)
  - ACTIVITIES OF DAILY LIVING IMPAIRED [None]
  - BALANCE DISORDER [None]
  - FATIGUE [None]
  - MEMORY IMPAIRMENT [None]
  - VISUAL DISTURBANCE [None]
